FAERS Safety Report 8379174-6 (Version None)
Quarter: 2012Q2

REPORT INFORMATION
  Report Type: 
  Country: None (occurrence: None)
  Receive Date: 20120523
  Receipt Date: 20120515
  Transmission Date: 20120825
  Serious: Yes (Hospitalization)
  Sender: FDA-Public Use
  Company Number: JP-SANOFI-AVENTIS-2011SA077921

PATIENT
  Age: 78 Year
  Sex: Male
  Weight: 60 kg

DRUGS (26)
  1. HEPARIN [Concomitant]
     Indication: ACUTE MYOCARDIAL INFARCTION
     Dosage: DOSE:8000 UNIT(S)
     Route: 042
     Dates: start: 20100404, end: 20100404
  2. FUROSEMIDE [Concomitant]
     Route: 048
     Dates: start: 20100416
  3. ATORVASTATIN CALCIUM [Concomitant]
     Route: 048
     Dates: start: 20100405
  4. ENALAPRIL MALEATE [Concomitant]
     Indication: ACUTE MYOCARDIAL INFARCTION
     Route: 048
     Dates: start: 20100406
  5. SIGMART [Concomitant]
     Dates: start: 20100404, end: 20100406
  6. ASPIRIN [Concomitant]
     Route: 048
     Dates: start: 20100405
  7. CARVEDILOL [Concomitant]
     Route: 048
     Dates: start: 20100423, end: 20100425
  8. GLUCOBAY [Concomitant]
     Route: 048
     Dates: start: 20100407
  9. RABEPRAZOLE SODIUM [Concomitant]
     Route: 048
     Dates: start: 20100405
  10. CARVEDILOL [Concomitant]
     Indication: ACUTE MYOCARDIAL INFARCTION
     Route: 048
     Dates: start: 20100406, end: 20100422
  11. CLEANAL [Concomitant]
     Indication: COUGH
     Route: 048
     Dates: start: 20100407
  12. VITAMIN B12 [Concomitant]
     Route: 048
     Dates: start: 20100412
  13. PLAVIX [Suspect]
     Route: 065
     Dates: start: 20100405
  14. ASPIRIN [Concomitant]
     Indication: PERCUTANEOUS CORONARY INTERVENTION
     Route: 048
     Dates: start: 20100404, end: 20100404
  15. WARFARIN [Concomitant]
     Route: 048
     Dates: start: 20100422
  16. LASIX [Concomitant]
     Dates: start: 20100405, end: 20100415
  17. ASPIRIN [Concomitant]
     Route: 048
     Dates: start: 20100405
  18. HEPARIN [Concomitant]
     Dosage: DOSE:15000 UNIT(S)
     Route: 042
     Dates: start: 20100404, end: 20100406
  19. DOBUTAMINE HCL [Concomitant]
     Dosage: STRENGTH:0.3%
     Dates: start: 20100408, end: 20100415
  20. PLAVIX [Suspect]
     Indication: ACUTE MYOCARDIAL INFARCTION
     Dosage: LOADING TREATMENT
     Route: 065
     Dates: start: 20100404, end: 20100404
  21. ASPIRIN [Concomitant]
     Indication: ACUTE MYOCARDIAL INFARCTION
     Route: 048
     Dates: start: 20100404, end: 20100404
  22. CARVEDILOL [Concomitant]
     Route: 048
     Dates: start: 20100426
  23. INOVAN [Concomitant]
     Dosage: STRENGTH:0.3%
     Dates: start: 20100406, end: 20100415
  24. HEPARIN [Concomitant]
     Indication: PERCUTANEOUS CORONARY INTERVENTION
     Dosage: DOSE:8000 UNIT(S)
     Route: 042
     Dates: start: 20100404, end: 20100404
  25. HEPARIN [Concomitant]
     Dosage: DOSE:15000 UNIT(S)
     Route: 042
     Dates: start: 20100404, end: 20100406
  26. MAGNESIUM OXIDE [Concomitant]
     Route: 048
     Dates: start: 20100405

REACTIONS (1)
  - CARDIAC FAILURE CONGESTIVE [None]
